FAERS Safety Report 19171287 (Version 5)
Quarter: 2021Q4

REPORT INFORMATION
  Report Type: Spontaneous
  Country: US (occurrence: US)
  Receive Date: 20210423
  Receipt Date: 20211007
  Transmission Date: 20220303
  Serious: No
  Sender: FDA-Public Use
  Company Number: US-BIOGEN-2021BI01003605

PATIENT
  Age: 48 Year
  Sex: Female

DRUGS (2)
  1. TYSABRI [Suspect]
     Active Substance: NATALIZUMAB
     Indication: Multiple sclerosis
     Route: 042
     Dates: start: 20210416
  2. TYSABRI [Suspect]
     Active Substance: NATALIZUMAB
     Dosage: SECOND INFUSION INFUSED OVER 2 HOURS
     Route: 042
     Dates: start: 20110502, end: 20130128

REACTIONS (5)
  - Prescribed underdose [Unknown]
  - Incorrect drug administration rate [Unknown]
  - Muscle spasms [Unknown]
  - Nausea [Unknown]
  - Headache [Recovered/Resolved]

NARRATIVE: CASE EVENT DATE: 20210416
